FAERS Safety Report 20860569 (Version 1)
Quarter: 2022Q2

REPORT INFORMATION
  Report Type: Other
  Country: None (occurrence: US)
  Receive Date: 20220523
  Receipt Date: 20220523
  Transmission Date: 20220720
  Serious: Yes (Life-Threatening, Other)
  Sender: FDA-Public Use
  Company Number: US-ACI HealthCare Limited-2129037

PATIENT
  Age: 9 Month
  Sex: Female

DRUGS (5)
  1. LEVETIRACETAM [Suspect]
     Active Substance: LEVETIRACETAM
     Indication: Status epilepticus
     Route: 065
  2. DIAZEPAM [Concomitant]
     Active Substance: DIAZEPAM
     Route: 054
  3. MIDAZOLAM [Concomitant]
     Active Substance: MIDAZOLAM
     Route: 065
  4. LORAZEPAM [Concomitant]
     Active Substance: LORAZEPAM
     Route: 042
  5. FOSPHENYTOIN SODIUM [Concomitant]
     Active Substance: FOSPHENYTOIN SODIUM
     Route: 065

REACTIONS (1)
  - Drug ineffective [Unknown]
